FAERS Safety Report 4383744-X (Version None)
Quarter: 2004Q2

REPORT INFORMATION
  Report Type: 
  Country: None (occurrence: None)
  Receive Date: 20040608
  Receipt Date: 20030710
  Transmission Date: 20050107
  Serious: Yes (Other)
  Sender: FDA-Public Use
  Company Number: 200312391BCC

PATIENT
  Age: 20 Year
  Sex: Male
  Weight: 68.0396 kg

DRUGS (2)
  1. ALEVE [Suspect]
     Indication: TOOTHACHE
     Dosage: 880 MG, ONCE, ORAL
     Route: 048
     Dates: start: 20030709
  2. VICODIN [Suspect]
     Dosage: 7.5/750 MG, QD, ORAL
     Route: 048

REACTIONS (2)
  - BLOOD URINE [None]
  - NAUSEA [None]
